FAERS Safety Report 16395342 (Version 1)
Quarter: 2019Q3

REPORT INFORMATION
  Report Type: Spontaneous
  Country: US (occurrence: US)
  Receive Date: 20190604
  Receipt Date: 20190604
  Transmission Date: 20191004
  Serious: Yes (Other)
  Sender: FDA-Public Use
  Company Number: None

PATIENT
  Sex: Male
  Weight: 152.1 kg

DRUGS (13)
  1. GLUCOPHAGE [Concomitant]
     Active Substance: METFORMIN HYDROCHLORIDE
  2. LANTUS [Concomitant]
     Active Substance: INSULIN GLARGINE
  3. VOTRIENT [Suspect]
     Active Substance: PAZOPANIB HYDROCHLORIDE
     Indication: MALIGNANT CONNECTIVE TISSUE NEOPLASM
     Route: 048
     Dates: start: 20190427
  4. ASPIRIN. [Concomitant]
     Active Substance: ASPIRIN
  5. STARLIX [Concomitant]
     Active Substance: NATEGLINIDE
  6. WELCHOL [Concomitant]
     Active Substance: COLESEVELAM HYDROCHLORIDE
  7. AMBIEN [Concomitant]
     Active Substance: ZOLPIDEM TARTRATE
  8. AMARYL [Concomitant]
     Active Substance: GLIMEPIRIDE
  9. NIASPAN [Concomitant]
     Active Substance: NIACIN
  10. FLOMAX [Concomitant]
     Active Substance: TAMSULOSIN HYDROCHLORIDE
  11. ZETIA [Concomitant]
     Active Substance: EZETIMIBE
  12. ELIQUIS [Concomitant]
     Active Substance: APIXABAN
  13. SYNTHROID [Concomitant]
     Active Substance: LEVOTHYROXINE SODIUM

REACTIONS (7)
  - Stomatitis [None]
  - Skin burning sensation [None]
  - Gait disturbance [None]
  - Pain in extremity [None]
  - Pruritus [None]
  - Contusion [None]
  - Palmar-plantar erythrodysaesthesia syndrome [None]
